FAERS Safety Report 16724746 (Version 1)
Quarter: 2019Q4

REPORT INFORMATION
  Report Type: Spontaneous
  Country: US (occurrence: US)
  Receive Date: 20190820
  Receipt Date: 20190820
  Transmission Date: 20200122
  Serious: Yes (Hospitalization)
  Sender: FDA-Public Use
  Company Number: None

PATIENT
  Age: 68 Year
  Sex: Female

DRUGS (11)
  1. TYLENOL [Concomitant]
     Active Substance: ACETAMINOPHEN
     Dates: start: 20170501
  2. PAROXETINE. [Concomitant]
     Active Substance: PAROXETINE
     Dates: start: 20170501
  3. METOPROLOL TART [Concomitant]
     Active Substance: METOPROLOL TARTRATE
     Dates: start: 20180309
  4. DIGOX [Concomitant]
     Active Substance: DIGOXIN
     Dates: start: 20190715
  5. SILDENAFIL. [Suspect]
     Active Substance: SILDENAFIL
     Indication: PULMONARY HYPERTENSION
     Route: 048
     Dates: start: 20170427
  6. XARELTO [Concomitant]
     Active Substance: RIVAROXABAN
     Dates: start: 20170501
  7. RENA-VITE [Concomitant]
     Active Substance: ASCORBIC ACID\BIOTIN\CALCIUM PANTOTHENATE\CYANOCOBALAMIN\FOLIC ACID\NIACINAMIDE\PYRIDOXINE HYDROCHLORIDE\RIBOFLAVIN\THIAMINE MONONITRATE
     Dates: start: 20190730
  8. TORSEMIDE. [Concomitant]
     Active Substance: TORSEMIDE
     Dates: start: 20180309
  9. MULTIVITAMIN [Concomitant]
     Active Substance: VITAMINS
     Dates: start: 20170501
  10. POTASSIUM [Concomitant]
     Active Substance: POTASSIUM
     Dates: start: 20170501
  11. SIMVASTATIN. [Concomitant]
     Active Substance: SIMVASTATIN
     Dates: start: 20180309

REACTIONS (1)
  - Hospitalisation [None]

NARRATIVE: CASE EVENT DATE: 20190814
